FAERS Safety Report 9435154 (Version 1)
Quarter: 2013Q3

REPORT INFORMATION
  Report Type: Spontaneous
  Country: FR (occurrence: FR)
  Receive Date: 20130801
  Receipt Date: 20130801
  Transmission Date: 20140515
  Serious: Yes (Hospitalization, Disabling)
  Sender: FDA-Public Use
  Company Number: FR-JNJFOC-20130715566

PATIENT
  Age: 78 Year
  Sex: Male

DRUGS (5)
  1. XARELTO [Suspect]
     Indication: CEREBROVASCULAR ACCIDENT PROPHYLAXIS
     Route: 048
  2. XARELTO [Suspect]
     Indication: ATRIAL FIBRILLATION
     Route: 048
  3. STILNOX [Concomitant]
     Dosage: DOSE: 1/2 TABLET PER DAY
     Route: 065
  4. LECTIL [Concomitant]
     Dosage: DOSE: 1/2 TAB PER DAY
     Route: 065
  5. APROVEL [Concomitant]
     Route: 065

REACTIONS (1)
  - Cerebral infarction [Not Recovered/Not Resolved]
